FAERS Safety Report 10272295 (Version 1)
Quarter: 2014Q2

REPORT INFORMATION
  Report Type: Spontaneous
  Country: US (occurrence: None)
  Receive Date: 20140627
  Receipt Date: 20140627
  Transmission Date: 20141212
  Serious: Yes (Hospitalization)
  Sender: FDA-Public Use
  Company Number: None

PATIENT
  Age: 46 Year
  Sex: Female
  Weight: 90.27 kg

DRUGS (18)
  1. ALEMTUZUMAB [Suspect]
     Indication: MULTIPLE SCLEROSIS
     Dosage: DAY1TO3 12MG QD IV (041)
     Route: 042
     Dates: start: 20140414, end: 20140416
  2. SOLUMEDROL [Suspect]
     Dosage: DAY1TO3 1G QD IV (041)?
     Route: 042
     Dates: start: 20140414, end: 20140416
  3. ACYCLOVIR [Concomitant]
  4. BACLOFEN [Concomitant]
  5. BOTOX [Concomitant]
  6. CYMBALTA [Concomitant]
  7. OXCARBAMAZEPINE [Concomitant]
  8. CLONAZEPAM [Concomitant]
  9. LYRICS [Concomitant]
  10. MORPHINE [Concomitant]
  11. PROVIGIL [Concomitant]
  12. MECLIZINE [Concomitant]
  13. MELOXICAM [Concomitant]
  14. VITAMIN D [Concomitant]
  15. TIZANIDINE [Concomitant]
  16. HYDROXYZINE [Concomitant]
  17. DEMEROL [Concomitant]
  18. METOPLROLOL [Concomitant]

REACTIONS (6)
  - Loss of consciousness [None]
  - Convulsion [None]
  - Complex partial seizures [None]
  - Delayed recovery from anaesthesia [None]
  - Device dislocation [None]
  - Removal of foreign body [None]
